FAERS Safety Report 18386480 (Version 1)
Quarter: 2020Q4

REPORT INFORMATION
  Report Type: Spontaneous
  Country: US (occurrence: US)
  Receive Date: 20201015
  Receipt Date: 20201015
  Transmission Date: 20210114
  Serious: No
  Sender: FDA-Public Use
  Company Number: US-AMGEN-USASP2020165385

PATIENT
  Age: 66 Year
  Sex: Female

DRUGS (7)
  1. POTASSIUM [Concomitant]
     Active Substance: POTASSIUM
     Dosage: 99 MILLIGRAM, QD
  2. EPIPEN [Concomitant]
     Active Substance: EPINEPHRINE
  3. VIT D [Concomitant]
     Active Substance: VITAMIN D NOS
     Dosage: 50000 UNIT, Q2WK
  4. FUROSEMIDE. [Concomitant]
     Active Substance: FUROSEMIDE
  5. CALCIUM [Concomitant]
     Active Substance: CALCIUM
     Dosage: 600 MILLIGRAM, BID
  6. MAG OXIDE [Concomitant]
     Active Substance: MAGNESIUM OXIDE
     Dosage: 400 MILLIGRAM, BID
  7. REPATHA [Suspect]
     Active Substance: EVOLOCUMAB
     Indication: HYPERCHOLESTEROLAEMIA
     Dosage: UNK UNK, Q2WK
     Route: 065
     Dates: start: 20200807

REACTIONS (26)
  - Chest pain [Unknown]
  - Mental disorder [Unknown]
  - Vertigo [Unknown]
  - Diarrhoea [Unknown]
  - Oropharyngeal pain [Unknown]
  - Nasal congestion [Unknown]
  - Ear pain [Unknown]
  - Muscle spasms [Unknown]
  - Rhinorrhoea [Unknown]
  - Bladder pain [Unknown]
  - Back pain [Unknown]
  - Paranasal sinus discomfort [Unknown]
  - Dyspnoea [Unknown]
  - Dizziness [Unknown]
  - Rash macular [Unknown]
  - Lymphadenopathy [Unknown]
  - Emotional disorder [Unknown]
  - Quality of life decreased [Unknown]
  - Fatigue [Unknown]
  - Feeling abnormal [Unknown]
  - Dysphonia [Unknown]
  - Cough [Unknown]
  - Sinusitis [Unknown]
  - Urticaria [Unknown]
  - Blood triglycerides increased [Unknown]
  - Nausea [Unknown]

NARRATIVE: CASE EVENT DATE: 202008
